FAERS Safety Report 6674178-3 (Version None)
Quarter: 2010Q2

REPORT INFORMATION
  Report Type: 
  Country: None (occurrence: None)
  Receive Date: 20100409
  Receipt Date: 20100330
  Transmission Date: 20101027
  Serious: Yes (Hospitalization)
  Sender: FDA-Public Use
  Company Number: DE-MPIJNJ-2010-02014

PATIENT

DRUGS (2)
  1. VELCADE [Suspect]
     Indication: MULTIPLE MYELOMA
     Dosage: 1.3 MG/M2, UNK
     Route: 042
     Dates: start: 20100215, end: 20100222
  2. BENDAMUSTINE [Suspect]
     Dosage: 115 MG, UNK
     Route: 042
     Dates: start: 20100215, end: 20100216

REACTIONS (5)
  - BACK PAIN [None]
  - COMPRESSION FRACTURE [None]
  - LUMBAR VERTEBRAL FRACTURE [None]
  - MOBILITY DECREASED [None]
  - PAIN [None]
